FAERS Safety Report 21459697 (Version 1)
Quarter: 2022Q4

REPORT INFORMATION
  Report Type: Report from Study
  Country: PL (occurrence: PL)
  Receive Date: 20221014
  Receipt Date: 20221014
  Transmission Date: 20230112
  Serious: Yes (Hospitalization, Other)
  Sender: FDA-Public Use
  Company Number: PL-BRISTOL-MYERS SQUIBB COMPANY-2022-031724

PATIENT
  Age: 60 Year
  Sex: Male

DRUGS (6)
  1. AZACITIDINE [Suspect]
     Active Substance: AZACITIDINE
     Indication: Myelodysplastic syndrome
     Dosage: 7 DAYS WITHIN FIRST 9 CALENDAR DAYS OF EACH 28 DAY CYCLE
     Route: 058
     Dates: start: 20210920
  2. METOPROLOL SUCCINATE [Concomitant]
     Active Substance: METOPROLOL SUCCINATE
     Indication: Arrhythmia
     Route: 048
     Dates: start: 20211018
  3. NYSTATYNA [Concomitant]
     Indication: Fungal infection
     Dosage: 100000 J.M./ML (3 IN 1 DAY)
     Route: 048
     Dates: start: 20211018, end: 20211111
  4. NYSTATYNA [Concomitant]
     Indication: Antifungal prophylaxis
     Dosage: 3 APPLICATORFULL (1 APPLICATORFULL,3 IN 1 D), 1 APPLICATION (3 IN 1 D)
     Route: 061
     Dates: start: 20220125
  5. METOPROLOL [Concomitant]
     Active Substance: METOPROLOL
     Indication: Atrial fibrillation
     Dosage: 1 IN 1 D
     Route: 048
     Dates: start: 20220207
  6. CIPROFLOXACIN HYDROCHLORIDE [Concomitant]
     Active Substance: CIPROFLOXACIN HYDROCHLORIDE
     Indication: Infection prophylaxis
     Dosage: 1 IN 1 D
     Route: 048
     Dates: start: 20220204

REACTIONS (2)
  - Tonsillitis [Recovered/Resolved]
  - Pseudomonas infection [Recovered/Resolved]

NARRATIVE: CASE EVENT DATE: 20220420
